FAERS Safety Report 9070219 (Version 2)
Quarter: 2013Q1

REPORT INFORMATION
  Report Type: Report from Study
  Country: ES (occurrence: ES)
  Receive Date: 20130215
  Receipt Date: 20130319
  Transmission Date: 20140127
  Serious: Yes (Life-Threatening, Hospitalization)
  Sender: FDA-Public Use
  Company Number: ES-CELGENEUS-144-AB007-13021522

PATIENT
  Age: 64 Year
  Sex: Male
  Weight: 72.8 kg

DRUGS (17)
  1. ABI-007 [Suspect]
     Indication: PANCREATIC CARCINOMA METASTATIC
     Dosage: 222MG
     Route: 041
     Dates: start: 20120216, end: 20130211
  2. GEMCITABINE [Suspect]
     Indication: PANCREATIC CARCINOMA METASTATIC
     Dosage: 1780MG
     Route: 041
     Dates: start: 20120216, end: 20130211
  3. OMEPRAZOLE [Concomitant]
     Indication: PROPHYLAXIS AGAINST GASTROINTESTINAL ULCER
     Route: 048
     Dates: start: 20120207
  4. CIDINE [Concomitant]
     Indication: PRODUCT USED FOR UNKNOWN INDICATION
     Route: 065
  5. ALMAX [Concomitant]
     Indication: PROPHYLAXIS AGAINST GASTROINTESTINAL ULCER
     Route: 048
     Dates: start: 20120120
  6. FENTANILO [Concomitant]
     Indication: ABDOMINAL PAIN
     Route: 058
     Dates: start: 20120120
  7. BUSCAPINA [Concomitant]
     Indication: PRODUCT USED FOR UNKNOWN INDICATION
     Route: 065
  8. DOMPERIDONE [Concomitant]
     Indication: ABDOMINAL PAIN
     Route: 048
     Dates: start: 20120207
  9. TRYPTIZOL [Concomitant]
     Indication: ABDOMINAL PAIN
     Route: 048
     Dates: start: 20120207
  10. SEGURIL [Concomitant]
     Indication: OEDEMA PERIPHERAL
     Route: 048
     Dates: start: 20120308
  11. AUGMENTINE [Concomitant]
     Indication: CELLULITIS
     Route: 048
     Dates: start: 20120322
  12. SYNALAR [Concomitant]
     Indication: HAEMORRHOIDS
     Route: 054
     Dates: start: 20120329
  13. FORTASEC [Concomitant]
     Indication: DIARRHOEA
     Route: 048
     Dates: start: 20120712
  14. GABAPENTINE [Concomitant]
     Indication: PERIPHERAL SENSORY NEUROPATHY
     Route: 048
     Dates: start: 20120822
  15. ALDACTONE [Concomitant]
     Indication: OEDEMA PERIPHERAL
     Route: 048
     Dates: start: 20121114
  16. ALDACTONE [Concomitant]
     Indication: OEDEMA GENITAL
  17. ALDACTONE [Concomitant]
     Indication: OEDEMA PERIPHERAL

REACTIONS (1)
  - Neutropenic infection [Recovered/Resolved]
